FAERS Safety Report 4566601-5 (Version None)
Quarter: 2005Q1

REPORT INFORMATION
  Report Type: 
  Country: None (occurrence: None)
  Receive Date: 20050201
  Receipt Date: 20050120
  Transmission Date: 20050727
  Serious: Yes (Other)
  Sender: FDA-Public Use
  Company Number: GB-BRISTOL-MYERS SQUIBB COMPANY-12833968

PATIENT

DRUGS (1)
  1. PARAPLATIN [Suspect]

REACTIONS (1)
  - TOXIC EPIDERMAL NECROLYSIS [None]
